FAERS Safety Report 8580643 (Version 4)
Quarter: 2013Q3

REPORT INFORMATION
  Report Type: Report from Study
  Country: US (occurrence: US)
  Receive Date: 20120525
  Receipt Date: 20130829
  Transmission Date: 20140515
  Serious: Yes (Hospitalization)
  Sender: FDA-Public Use
  Company Number: US-ACTELION-A-US2012-66099

PATIENT
  Age: 58 Year
  Sex: Female

DRUGS (3)
  1. TRACLEER [Suspect]
     Indication: PULMONARY ARTERIAL HYPERTENSION
     Dosage: UNK
     Route: 048
     Dates: start: 20100830
  2. REVATIO [Concomitant]
  3. CELLCEPT [Concomitant]

REACTIONS (6)
  - Spinal disorder [Unknown]
  - Gait disturbance [Unknown]
  - Back pain [Unknown]
  - Fall [Unknown]
  - Food poisoning [Unknown]
  - Spinal fracture [Recovering/Resolving]
